FAERS Safety Report 9024723 (Version 2)
Quarter: 2013Q1

REPORT INFORMATION
  Report Type: Spontaneous
  Country: US (occurrence: US)
  Receive Date: 20130121
  Receipt Date: 20130227
  Transmission Date: 20140127
  Serious: Yes (Hospitalization)
  Sender: FDA-Public Use
  Company Number: US-BIOGENIDEC-2013BI003730

PATIENT
  Age: 68 Year
  Sex: Female

DRUGS (1)
  1. AVONEX [Suspect]
     Indication: MULTIPLE SCLEROSIS
     Route: 030
     Dates: start: 20120823

REACTIONS (5)
  - Stent placement [Recovered/Resolved]
  - Pneumonia aspiration [Recovered/Resolved]
  - Cardiac failure congestive [Not Recovered/Not Resolved]
  - Cardiac disorder [Unknown]
  - Depression [Not Recovered/Not Resolved]
